FAERS Safety Report 8281877-9 (Version None)
Quarter: 2012Q2

REPORT INFORMATION
  Report Type: 
  Country: None (occurrence: None)
  Receive Date: 20120410
  Receipt Date: 20120403
  Transmission Date: 20120825
  Serious: Yes (Other)
  Sender: FDA-Public Use
  Company Number: ADR-2012-00651

PATIENT
  Sex: Female

DRUGS (2)
  1. LIORESAL [Suspect]
     Indication: MUSCLE SPASTICITY
  2. LIORESAL [Suspect]
     Indication: SPINAL CORD INJURY

REACTIONS (3)
  - CULTURE POSITIVE [None]
  - ESCHERICHIA TEST POSITIVE [None]
  - IMPLANT SITE INFECTION [None]
